FAERS Safety Report 6991939-1 (Version None)
Quarter: 2010Q3

REPORT INFORMATION
  Report Type: 
  Country: None (occurrence: None)
  Receive Date: 20100917
  Receipt Date: 20100909
  Transmission Date: 20110219
  Serious: Yes (Hospitalization)
  Sender: FDA-Public Use
  Company Number: PHHY2010CA54649

PATIENT
  Sex: Female

DRUGS (5)
  1. EXELON [Suspect]
     Indication: DEMENTIA ALZHEIMER'S TYPE
     Dosage: 5 CM PATCH, 4.6 MG/24H
     Route: 062
     Dates: start: 20100224, end: 20100501
  2. BISOPROLOL [Concomitant]
     Dosage: 5 UNK, DAILY
  3. ACETAMINOPHEN [Concomitant]
     Dosage: 500 UNK, BID
  4. COUMADIN [Concomitant]
     Dosage: ACCORDING TO INR
  5. COLACE [Concomitant]
     Dosage: 100 UNK, QHS

REACTIONS (2)
  - ACUTE PULMONARY OEDEMA [None]
  - CARDIAC FIBRILLATION [None]
